FAERS Safety Report 4302900-X (Version None)
Quarter: 2004Q1

REPORT INFORMATION
  Report Type: 
  Country: None (occurrence: None)
  Receive Date: 20040220
  Receipt Date: 20040209
  Transmission Date: 20041129
  Serious: Yes (Other)
  Sender: FDA-Public Use
  Company Number: NSADSS2002031731

PATIENT
  Age: 30 Year
  Sex: Female
  Weight: 54.8852 kg

DRUGS (5)
  1. REMICADE [Suspect]
     Indication: CROHN'S DISEASE
     Dosage: 3, 1 IN 1 AS NECESSARY, INTRAVENOUS DRIP
     Route: 041
     Dates: start: 20020101, end: 20020101
  2. S-ASA (SALICYLIC ACID PREPARATIONS) [Concomitant]
  3. ENTOCORT (BUDESONIDE) [Concomitant]
  4. ASACOL [Concomitant]
  5. COLAZAL (BALSALAZIDE SODIUM) [Concomitant]

REACTIONS (13)
  - ABDOMINAL DISTENSION [None]
  - ABDOMINAL PAIN LOWER [None]
  - ABNORMAL FAECES [None]
  - ARTHRALGIA [None]
  - COLD SWEAT [None]
  - DIARRHOEA [None]
  - DRUG EFFECT DECREASED [None]
  - HAEMATOCHEZIA [None]
  - HAEMORRHOIDS [None]
  - IRRITABILITY [None]
  - PAIN [None]
  - RASH [None]
  - WEIGHT INCREASED [None]
